FAERS Safety Report 5135899-7 (Version None)
Quarter: 2006Q4

REPORT INFORMATION
  Report Type: 
  Country: None (occurrence: None)
  Receive Date: 20061020
  Receipt Date: 20061010
  Transmission Date: 20070319
  Serious: Yes (Other)
  Sender: FDA-Public Use
  Company Number: 2006BH013868

PATIENT
  Age: 84 Year
  Sex: Female
  Weight: 57.6068 kg

DRUGS (3)
  1. MIDAZOLAM [Suspect]
     Indication: SEDATION
     Dosage: 1 MG;ONCE;IV
     Route: 042
     Dates: start: 20060915, end: 20060915
  2. FUROSEMIDE [Concomitant]
  3. NITROGLYCERIN [Concomitant]

REACTIONS (1)
  - UNRESPONSIVE TO STIMULI [None]
